FAERS Safety Report 17091630 (Version 1)
Quarter: 2019Q4

REPORT INFORMATION
  Report Type: Spontaneous
  Country: PL (occurrence: PL)
  Receive Date: 20191129
  Receipt Date: 20191129
  Transmission Date: 20200122
  Serious: Yes (Other)
  Sender: FDA-Public Use
  Company Number: PL-FERRINGPH-2019FE07847

PATIENT

DRUGS (2)
  1. MINIRIN [Suspect]
     Active Substance: DESMOPRESSIN ACETATE
     Dosage: 120 MG, 2 TIMES DAILY
     Route: 065
  2. MINIRIN [Suspect]
     Active Substance: DESMOPRESSIN ACETATE
     Indication: DIABETES INSIPIDUS
     Dosage: BECAUSE OF LACK OF THERAPEUTIC EFFECT DOSE INCREASED FROM 120MG TO 240 MG
     Route: 065

REACTIONS (5)
  - Balance disorder [Unknown]
  - Constipation [Unknown]
  - Somnolence [Unknown]
  - Hypertension [Unknown]
  - Dizziness [Unknown]
